FAERS Safety Report 6750001-3 (Version None)
Quarter: 2010Q2

REPORT INFORMATION
  Report Type: 
  Country: None (occurrence: None)
  Receive Date: 20100601
  Receipt Date: 20100526
  Transmission Date: 20101027
  Serious: Yes (Death, Other)
  Sender: FDA-Public Use
  Company Number: GXKR2010JP05011

PATIENT
  Age: 72 Year
  Sex: Male
  Weight: 56.3 kg

DRUGS (5)
  1. PREDNISOLONE (NGX) [Suspect]
     Indication: AUTOIMMUNE HEPATITIS
     Dosage: 50 MG, UNK  (TAPERED GRADUALLY)
     Route: 065
     Dates: start: 20080621
  2. PREDNISOLONE (NGX) [Suspect]
     Dosage: 35 MG
  3. PREDNISOLONE (NGX) [Suspect]
     Dosage: 22.5 MG, UNK
     Route: 065
  4. STEROIDS NOS [Concomitant]
     Indication: AUTOIMMUNE HEPATITIS
     Dosage: 125 MG, PULSE THERAPY
     Route: 065
     Dates: start: 20080601
  5. CYCLOSPORINE [Concomitant]
     Indication: AUTOIMMUNE HEPATITIS
     Dosage: 50 MG, UNK
     Route: 065
     Dates: start: 20080714

REACTIONS (2)
  - ASPERGILLOSIS [None]
  - THROMBOCYTOPENIA [None]
